FAERS Safety Report 7810755-1 (Version None)
Quarter: 2011Q4

REPORT INFORMATION
  Report Type: 
  Country: None (occurrence: None)
  Receive Date: 20111006
  Receipt Date: 20110926
  Transmission Date: 20120403
  Serious: No
  Sender: FDA-Public Use
  Company Number: SPI201100266

PATIENT
  Age: 83 Year
  Sex: Female
  Weight: 57.1 kg

DRUGS (12)
  1. VITAMIN D [Concomitant]
  2. HYDRALAZINE (HYDRALAZINE HYDROCHLORIDE) [Concomitant]
  3. COLACE (DOCUSATE SODIUM) [Concomitant]
  4. AMITIZA [Suspect]
     Indication: IRRITABLE BOWEL SYNDROME
     Dosage: 8 MCG,BID, ORAL; 8 MCG, 3 CAPSULES BID, ORAL; 8 MCG, 2 CAPSULES BID, ORAL
     Route: 048
     Dates: start: 20110915, end: 20110916
  5. AMITIZA [Suspect]
     Indication: IRRITABLE BOWEL SYNDROME
     Dosage: 8 MCG,BID, ORAL; 8 MCG, 3 CAPSULES BID, ORAL; 8 MCG, 2 CAPSULES BID, ORAL
     Route: 048
     Dates: start: 20110917, end: 20110922
  6. AMITIZA [Suspect]
     Indication: IRRITABLE BOWEL SYNDROME
     Dosage: 8 MCG,BID, ORAL; 8 MCG, 3 CAPSULES BID, ORAL; 8 MCG, 2 CAPSULES BID, ORAL
     Route: 048
     Dates: start: 20110812, end: 20110915
  7. ZEGERID (OMEPRAZOLE) [Concomitant]
  8. MULTIVITAMIN [Concomitant]
  9. XANAX [Concomitant]
  10. ASPIRIN [Concomitant]
  11. PROBIOTIC (LACTOBACILLUS ACIDOPHILUS, LACTOBACILLUS BIFIDUS) [Concomitant]
  12. TRAMADOL HCL [Concomitant]

REACTIONS (8)
  - DRUG TOLERANCE [None]
  - ASTHENIA [None]
  - CHEST DISCOMFORT [None]
  - DECREASED APPETITE [None]
  - WEIGHT DECREASED [None]
  - NAUSEA [None]
  - DRY MOUTH [None]
  - CHILLS [None]
